FAERS Safety Report 4928973-9 (Version None)
Quarter: 2006Q1

REPORT INFORMATION
  Report Type: 
  Country: None (occurrence: None)
  Receive Date: 20060301
  Receipt Date: 20060213
  Transmission Date: 20060701
  Serious: Yes (Other)
  Sender: FDA-Public Use
  Company Number: 2005-0008804

PATIENT
  Age: 44 Year
  Sex: Female

DRUGS (7)
  1. COMBIVIR [Suspect]
     Indication: HIV INFECTION
     Dosage: 1U PER DAY
     Dates: start: 20050819
  2. KALETRA [Suspect]
     Indication: HIV INFECTION
     Dosage: 3U PER DAY
     Dates: start: 20050819
  3. TENOFOVIR DISOPROXIL FUMARATE [Suspect]
     Indication: HIV INFECTION
     Dosage: 300MG PER DAY
     Dates: start: 20050819, end: 20051028
  4. ZIDOVUDINE [Suspect]
  5. MULTIVITAMIN [Concomitant]
     Dosage: 4U PER DAY
     Dates: start: 20050101
  6. ASCORBIC ACID [Concomitant]
     Dosage: 1U PER DAY
     Dates: start: 20050101
  7. IRON [Concomitant]
     Dosage: 1U PER DAY
     Dates: start: 20050819

REACTIONS (2)
  - DRUG EXPOSURE DURING PREGNANCY [None]
  - SMALL FOR DATES BABY [None]
